FAERS Safety Report 7869803-5 (Version None)
Quarter: 2011Q4

REPORT INFORMATION
  Report Type: 
  Country: None (occurrence: None)
  Receive Date: 20111028
  Receipt Date: 20111028
  Transmission Date: 20120403
  Serious: Yes (Hospitalization)
  Sender: FDA-Public Use
  Company Number: None

PATIENT
  Age: 53 Year
  Sex: Female

DRUGS (2)
  1. PEGASYS [Suspect]
     Indication: HEPATITIS C
     Dosage: 180MCG QW SQ
     Route: 058
     Dates: start: 20111013, end: 20111026
  2. RIBASPHERE [Suspect]
     Indication: HEPATITIS C
     Dosage: 1000MG DAILY PO
     Route: 048
     Dates: start: 20111013, end: 20111026

REACTIONS (5)
  - URTICARIA [None]
  - BURNING SENSATION [None]
  - VOMITING [None]
  - DIARRHOEA [None]
  - HAEMORRHOIDS [None]
